FAERS Safety Report 4356936-3 (Version None)
Quarter: 2004Q2

REPORT INFORMATION
  Report Type: 
  Country: None (occurrence: None)
  Receive Date: 20040507
  Receipt Date: 20040416
  Transmission Date: 20050107
  Serious: Yes (Other)
  Sender: FDA-Public Use
  Company Number: US_0404102476

PATIENT
  Age: 56 Year
  Sex: Female

DRUGS (4)
  1. EVISTA [Suspect]
     Dates: start: 19980101, end: 20030101
  2. FOSAMAX [Concomitant]
  3. MIACALCIN [Concomitant]
  4. ROCALTROL [Concomitant]

REACTIONS (1)
  - HIP FRACTURE [None]
